FAERS Safety Report 13495325 (Version 1)
Quarter: 2017Q2

REPORT INFORMATION
  Report Type: Spontaneous
  Country: US (occurrence: US)
  Receive Date: 20170427
  Receipt Date: 20170427
  Transmission Date: 20170830
  Serious: Yes (Disabling)
  Sender: FDA-Public Use
  Company Number: None

PATIENT
  Age: 32 Year
  Sex: Female
  Weight: 72 kg

DRUGS (2)
  1. BOTOX [Suspect]
     Active Substance: ONABOTULINUMTOXINA
     Indication: SKIN COSMETIC PROCEDURE
     Route: 030
     Dates: start: 20170309, end: 20170309
  2. MULTI VITAMIN [Concomitant]
     Active Substance: VITAMINS

REACTIONS (8)
  - Dissociation [None]
  - Dizziness [None]
  - Auditory nerve disorder [None]
  - Asthenia [None]
  - Cognitive disorder [None]
  - Tension headache [None]
  - Memory impairment [None]
  - Eye disorder [None]

NARRATIVE: CASE EVENT DATE: 20170309
